FAERS Safety Report 7563491-3 (Version None)
Quarter: 2011Q2

REPORT INFORMATION
  Report Type: 
  Country: None (occurrence: None)
  Receive Date: 20110622
  Receipt Date: 20110609
  Transmission Date: 20111010
  Serious: Yes (Other)
  Sender: FDA-Public Use
  Company Number: US-CELGENEUS-163-21880-11061620

PATIENT
  Age: 63 Year
  Sex: Male
  Weight: 106.9 kg

DRUGS (8)
  1. REVLIMID [Suspect]
     Route: 048
     Dates: start: 20110607
  2. DOCETAXEL [Suspect]
     Indication: PROSTATE CANCER
     Dosage: 75 MILLIGRAM/SQ. METER
     Route: 051
     Dates: start: 20101221
  3. DOCETAXEL [Suspect]
     Dosage: 75 MILLIGRAM/SQ. METER
     Route: 051
     Dates: start: 20110607, end: 20110607
  4. REVLIMID [Suspect]
     Indication: PROSTATE CANCER
     Dosage: 25 MILLIGRAM
     Route: 048
     Dates: start: 20101221
  5. BEVACIZUMAB [Suspect]
     Indication: PROSTATE CANCER
     Dosage: 15 MILLIGRAM/KILOGRAM
     Route: 051
     Dates: start: 20101221
  6. BEVACIZUMAB [Suspect]
     Dosage: 15 MILLIGRAM/KILOGRAM
     Route: 051
     Dates: start: 20110607, end: 20110607
  7. PREDNISONE [Suspect]
     Dosage: 5 MILLIGRAM
     Route: 048
     Dates: start: 20110607, end: 20110608
  8. PREDNISONE [Suspect]
     Indication: PROSTATE CANCER
     Dosage: 5 MILLIGRAM
     Route: 048
     Dates: start: 20101221

REACTIONS (1)
  - OSTEONECROSIS OF JAW [None]
